FAERS Safety Report 7767131-X (Version None)
Quarter: 2011Q3

REPORT INFORMATION
  Report Type: 
  Country: None (occurrence: None)
  Receive Date: 20110922
  Receipt Date: 20100810
  Transmission Date: 20111222
  Serious: No
  Sender: FDA-Public Use
  Company Number: US-ASTRAZENECA-2008UW04314

PATIENT
  Age: 480 Month
  Sex: Female
  Weight: 79.4 kg

DRUGS (4)
  1. SEROQUEL [Suspect]
     Indication: SCHIZOPHRENIA
     Dosage: 100 MG TO 200 MG
     Route: 048
     Dates: start: 19990201, end: 20071001
  2. SEROQUEL [Suspect]
     Indication: DEPRESSION
     Dosage: 100 MG TO 200 MG
     Route: 048
     Dates: start: 19990201, end: 20071001
  3. SEROQUEL [Suspect]
     Indication: BIPOLAR DISORDER
     Dosage: 100 MG TO 200 MG
     Route: 048
     Dates: start: 19990201, end: 20071001
  4. SEROQUEL [Suspect]
     Indication: ANXIETY
     Dosage: 100 MG TO 200 MG
     Route: 048
     Dates: start: 19990201, end: 20071001

REACTIONS (3)
  - TYPE 2 DIABETES MELLITUS [None]
  - DIABETIC COMPLICATION [None]
  - WEIGHT INCREASED [None]
